FAERS Safety Report 18079044 (Version 2)
Quarter: 2020Q3

REPORT INFORMATION
  Report Type: Spontaneous
  Country: US (occurrence: US)
  Receive Date: 20200728
  Receipt Date: 20200729
  Transmission Date: 20201103
  Serious: No
  Sender: FDA-Public Use
  Company Number: US-PFIZER INC-2020284427

PATIENT
  Age: 65 Year
  Sex: Male
  Weight: 84.37 kg

DRUGS (1)
  1. DEPO?TESTOSTERONE [Suspect]
     Active Substance: TESTOSTERONE CYPIONATE
     Indication: PITUITARY APOPLEXY
     Dosage: 1 ML (1ML BY INJECTION EVERY 10 DAYS)
     Dates: start: 2015

REACTIONS (2)
  - Nodule [Recovering/Resolving]
  - Malabsorption [Unknown]

NARRATIVE: CASE EVENT DATE: 20200710
